FAERS Safety Report 9334469 (Version 1)
Quarter: 2013Q2

REPORT INFORMATION
  Report Type: Spontaneous
  Country: US (occurrence: US)
  Receive Date: 20130606
  Receipt Date: 20130606
  Transmission Date: 20140414
  Serious: No
  Sender: FDA-Public Use
  Company Number: US-AMGEN-USASP2013034481

PATIENT
  Age: 85 Year
  Sex: Female

DRUGS (5)
  1. PROLIA [Suspect]
     Indication: BONE DISORDER
  2. MULTIVITAMIN                       /00097801/ [Concomitant]
  3. BABY ASPIRIN [Concomitant]
  4. CALCIUM [Concomitant]
  5. LUTEIN                             /01638501/ [Concomitant]

REACTIONS (2)
  - Rash [Recovered/Resolved]
  - Pruritus [Unknown]
